FAERS Safety Report 4852953-5 (Version None)
Quarter: 2005Q4

REPORT INFORMATION
  Report Type: 
  Country: None (occurrence: None)
  Receive Date: 20051212
  Receipt Date: 20051117
  Transmission Date: 20060501
  Serious: Yes (Other)
  Sender: FDA-Public Use
  Company Number: US200511002466

PATIENT
  Sex: Female

DRUGS (3)
  1. FORTEO [Suspect]
  2. FORTEO PEN (250MCG/ML) (FORTEO PEN 250MCG/ML (3ML) [Concomitant]
  3. PEN,DISPOSABLE [Concomitant]

REACTIONS (1)
  - BREAST CANCER FEMALE [None]
